FAERS Safety Report 9857871 (Version 1)
Quarter: 2014Q1

REPORT INFORMATION
  Report Type: Report from Study
  Country: GB (occurrence: GB)
  Receive Date: 20140131
  Receipt Date: 20140131
  Transmission Date: 20141002
  Serious: Yes (Life-Threatening)
  Sender: FDA-Public Use
  Company Number: GB-ROCHE-1336790

PATIENT
  Age: 65 Year
  Sex: Male
  Weight: 174 kg

DRUGS (3)
  1. RITUXIMAB [Suspect]
     Indication: RHEUMATOID ARTHRITIS
     Dosage: DATE OF LAST DOSE PRIOR TO SAE: 10/JAN/2013.
     Route: 065
     Dates: start: 20110901
  2. METHOTREXATE [Concomitant]
  3. SULPHASALAZINE [Concomitant]

REACTIONS (1)
  - Chest pain [Recovered/Resolved]
